FAERS Safety Report 6125347-2 (Version None)
Quarter: 2009Q1

REPORT INFORMATION
  Report Type: 
  Country: None (occurrence: None)
  Receive Date: 20090319
  Receipt Date: 20090319
  Transmission Date: 20090719
  Serious: No
  Sender: FDA-Public Use
  Company Number: None

PATIENT

DRUGS (1)
  1. DIFFERIN [Suspect]

REACTIONS (2)
  - DRY SKIN [None]
  - SKIN EXFOLIATION [None]
